FAERS Safety Report 8895791 (Version 2)
Quarter: 2015Q1

REPORT INFORMATION
  Report Type: Report from Study
  Country: US (occurrence: US)
  Receive Date: 20121107
  Receipt Date: 20150205
  Transmission Date: 20150721
  Serious: Yes (Death, Other)
  Sender: FDA-Public Use
  Company Number: US-ROCHE-1137000

PATIENT
  Sex: Female
  Weight: 75.14 kg

DRUGS (12)
  1. FLUDARA [Concomitant]
     Active Substance: FLUDARABINE PHOSPHATE
     Dosage: 50 MG IN 100 ML NORMAL
     Route: 065
  2. BENADRYL [Concomitant]
     Active Substance: DIPHENHYDRAMINE HYDROCHLORIDE
  3. VCR [Concomitant]
     Route: 065
  4. GRANISETRON [Suspect]
     Active Substance: GRANISETRON
     Indication: PRODUCT USED FOR UNKNOWN INDICATION
     Route: 065
  5. PREDNISONE. [Concomitant]
     Active Substance: PREDNISONE
  6. NOVANTRONE [Concomitant]
     Active Substance: MITOXANTRONE HYDROCHLORIDE
     Route: 042
  7. TYLENOL [Concomitant]
     Active Substance: ACETAMINOPHEN
  8. RITUXAN [Suspect]
     Active Substance: RITUXIMAB
     Indication: LYMPHOMA
     Dosage: IN 500 ML NORMAL SALINE
     Route: 042
     Dates: start: 19991111
  9. RITUXAN [Suspect]
     Active Substance: RITUXIMAB
     Dosage: IN100 ML NORMAL SALINE
     Route: 042
  10. EPOGEN [Concomitant]
     Active Substance: ERYTHROPOIETIN
     Route: 065
  11. COMPAZINE [Concomitant]
     Active Substance: PROCHLORPERAZINE MALEATE
  12. PROCRIT [Concomitant]
     Active Substance: ERYTHROPOIETIN

REACTIONS (23)
  - Nasopharyngitis [Unknown]
  - VIIth nerve paralysis [Unknown]
  - Pain [Unknown]
  - Upper respiratory tract infection [Unknown]
  - Diarrhoea [Recovering/Resolving]
  - Anaemia [Unknown]
  - Abasia [Unknown]
  - Death [Fatal]
  - Chills [Unknown]
  - Decreased appetite [Unknown]
  - Nausea [Unknown]
  - Asthenia [Unknown]
  - Pancytopenia [Unknown]
  - Vomiting [Unknown]
  - Contusion [Unknown]
  - Fatigue [Unknown]
  - Thrombocytopenia [Unknown]
  - Haemorrhage [Unknown]
  - Lymphadenopathy [Unknown]
  - Dizziness [Unknown]
  - Weight decreased [Unknown]
  - Hypoaesthesia oral [Unknown]
  - Poor venous access [Unknown]
